FAERS Safety Report 7545833-8 (Version None)
Quarter: 2011Q2

REPORT INFORMATION
  Report Type: 
  Country: None (occurrence: None)
  Receive Date: 20110614
  Receipt Date: 20110609
  Transmission Date: 20111010
  Serious: Yes (Hospitalization)
  Sender: FDA-Public Use
  Company Number: DE-SANOFI-AVENTIS-2011SA036359

PATIENT
  Sex: Female

DRUGS (4)
  1. ETANERCEPT [Suspect]
     Route: 065
     Dates: start: 20100601
  2. ETANERCEPT [Suspect]
     Route: 065
     Dates: start: 20091201, end: 20091201
  3. LEFLUNOMIDE [Suspect]
     Dosage: 20 MG
     Route: 048
  4. ETANERCEPT [Suspect]
     Route: 065
     Dates: end: 20110101

REACTIONS (2)
  - ANGINA PECTORIS [None]
  - INTERVERTEBRAL DISC PROTRUSION [None]
